FAERS Safety Report 7000329-7 (Version None)
Quarter: 2010Q3

REPORT INFORMATION
  Report Type: 
  Country: None (occurrence: None)
  Receive Date: 20100920
  Receipt Date: 20100910
  Transmission Date: 20110219
  Serious: Yes (Hospitalization, Other)
  Sender: FDA-Public Use
  Company Number: CH-JNJFOC-20100902800

PATIENT
  Age: 21 Year
  Sex: Male
  Weight: 54 kg

DRUGS (3)
  1. CONCERTA [Suspect]
     Indication: DISTURBANCE IN ATTENTION
     Route: 048
  2. CONCERTA [Suspect]
     Route: 048
  3. CONCERTA [Suspect]
     Route: 048

REACTIONS (5)
  - ARTHRALGIA [None]
  - MYALGIA [None]
  - SYNCOPE [None]
  - TETANY [None]
  - TREMOR [None]
